FAERS Safety Report 7220816-6 (Version None)
Quarter: 2011Q1

REPORT INFORMATION
  Report Type: 
  Country: None (occurrence: None)
  Receive Date: 20110112
  Receipt Date: 20110104
  Transmission Date: 20110831
  Serious: Yes (Hospitalization)
  Sender: FDA-Public Use
  Company Number: US-BIOGENIDEC-2006BI011206

PATIENT
  Age: 52 Year
  Sex: Female

DRUGS (1)
  1. AVONEX [Suspect]
     Indication: MULTIPLE SCLEROSIS
     Route: 030
     Dates: start: 20031010

REACTIONS (8)
  - WOUND INFECTION STAPHYLOCOCCAL [None]
  - VAGINAL INFECTION [None]
  - DISORIENTATION [None]
  - MEMORY IMPAIRMENT [None]
  - WOUND [None]
  - CONVULSION [None]
  - INFLUENZA LIKE ILLNESS [None]
  - DRUG INTERACTION [None]
